FAERS Safety Report 7043363-3 (Version None)
Quarter: 2010Q4

REPORT INFORMATION
  Report Type: 
  Country: None (occurrence: None)
  Receive Date: 20101013
  Receipt Date: 20101008
  Transmission Date: 20110411
  Serious: Yes (Hospitalization)
  Sender: FDA-Public Use
  Company Number: US-AMGEN-KDL444539

PATIENT
  Sex: Male

DRUGS (1)
  1. ENBREL [Suspect]
     Indication: RHEUMATOID ARTHRITIS
     Route: 058
     Dates: start: 20080701

REACTIONS (8)
  - ABASIA [None]
  - ABDOMINAL PAIN [None]
  - ADHESION [None]
  - MALIGNANT MELANOMA [None]
  - MECHANICAL VENTILATION [None]
  - NEPHROLITHIASIS [None]
  - POST PROCEDURAL COMPLICATION [None]
  - UMBILICAL HERNIA [None]
